FAERS Safety Report 6955286-6 (Version None)
Quarter: 2010Q3

REPORT INFORMATION
  Report Type: 
  Country: None (occurrence: None)
  Receive Date: 20100830
  Receipt Date: 20100820
  Transmission Date: 20110219
  Serious: Yes (Hospitalization, Other)
  Sender: FDA-Public Use
  Company Number: PHHY2010US55526

PATIENT
  Age: 32 Year
  Sex: Female

DRUGS (1)
  1. FANAPT [Suspect]
     Dosage: 1 MG, BID
     Route: 048

REACTIONS (3)
  - AGGRESSION [None]
  - ALCOHOL USE [None]
  - SELF INJURIOUS BEHAVIOUR [None]
